FAERS Safety Report 4949752-2 (Version None)
Quarter: 2006Q1

REPORT INFORMATION
  Report Type: 
  Country: None (occurrence: None)
  Receive Date: 20060321
  Receipt Date: 20051208
  Transmission Date: 20060701
  Serious: Yes (Hospitalization)
  Sender: FDA-Public Use
  Company Number: US-MERCK-0512USA01611

PATIENT
  Age: 54 Year
  Sex: Male
  Weight: 98 kg

DRUGS (4)
  1. VIOXX [Suspect]
     Indication: ARTHRITIS
     Route: 048
     Dates: start: 20000118, end: 20020410
  2. LITHIUM ASPARTATE [Concomitant]
     Route: 065
  3. EFFEXOR [Concomitant]
     Route: 065
  4. ZOCOR [Concomitant]
     Route: 048

REACTIONS (3)
  - ANGINA UNSTABLE [None]
  - CORONARY ARTERY DISEASE [None]
  - MYOCARDIAL INFARCTION [None]
